FAERS Safety Report 6497195-5 (Version None)
Quarter: 2009Q4

REPORT INFORMATION
  Report Type: 
  Country: None (occurrence: None)
  Receive Date: 20091215
  Receipt Date: 20090707
  Transmission Date: 20100525
  Serious: No
  Sender: FDA-Public Use
  Company Number: A0788587A

PATIENT
  Age: 74 Year
  Sex: Male

DRUGS (5)
  1. AVODART [Suspect]
     Indication: BENIGN PROSTATIC HYPERPLASIA
     Dosage: .5MG PER DAY
     Route: 048
     Dates: start: 20060101, end: 20080101
  2. LISINOPRIL [Concomitant]
  3. HYDROCHLOROTHIAZIDE [Concomitant]
  4. CRESTOR [Concomitant]
  5. FLECAINIDE ACETATE [Concomitant]

REACTIONS (6)
  - BREAST SWELLING [None]
  - ERECTILE DYSFUNCTION [None]
  - LIBIDO DISORDER [None]
  - PROSTATIC SPECIFIC ANTIGEN DECREASED [None]
  - PROSTATIC SPECIFIC ANTIGEN INCREASED [None]
  - SEMEN VOLUME DECREASED [None]
